FAERS Safety Report 9273120 (Version 1)
Quarter: 2013Q2

REPORT INFORMATION
  Report Type: Spontaneous
  Country: US (occurrence: US)
  Receive Date: 20130506
  Receipt Date: 20130506
  Transmission Date: 20140414
  Serious: Yes (Other)
  Sender: FDA-Public Use
  Company Number: US-BAYER-2013-053255

PATIENT
  Age: 67 Year
  Sex: Female
  Weight: 53.06 kg

DRUGS (1)
  1. PHILLIPS STOOL SOFTENER BULK DOCUSATE [Suspect]
     Indication: CONSTIPATION
     Dosage: 2 DF, ONCE
     Route: 048
     Dates: start: 201203, end: 201203

REACTIONS (3)
  - Diarrhoea [Recovered/Resolved]
  - Dehydration [Recovered/Resolved]
  - Drug hypersensitivity [None]
